FAERS Safety Report 7507977-6 (Version None)
Quarter: 2011Q2

REPORT INFORMATION
  Report Type: 
  Country: None (occurrence: None)
  Receive Date: 20110527
  Receipt Date: 20110518
  Transmission Date: 20111010
  Serious: Yes (Other)
  Sender: FDA-Public Use
  Company Number: US-JNJFOC-20110407450

PATIENT
  Sex: Female
  Weight: 116.12 kg

DRUGS (3)
  1. STELARA [Suspect]
     Indication: PSORIASIS
     Route: 058
     Dates: start: 20101217
  2. LEVOXYL [Concomitant]
  3. STELARA [Suspect]
     Route: 058
     Dates: start: 20110114

REACTIONS (1)
  - CHEST X-RAY ABNORMAL [None]
